FAERS Safety Report 7568457-5 (Version None)
Quarter: 2011Q2

REPORT INFORMATION
  Report Type: 
  Country: None (occurrence: None)
  Receive Date: 20110623
  Receipt Date: 20110610
  Transmission Date: 20111010
  Serious: Yes (Hospitalization, Other)
  Sender: FDA-Public Use
  Company Number: US-ELI_LILLY_AND_COMPANY-US201105002270

PATIENT
  Sex: Female
  Weight: 122.45 kg

DRUGS (13)
  1. LOTRIL                             /00574902/ [Concomitant]
     Dosage: UNK, QD
     Route: 065
  2. PERCOCET [Concomitant]
     Dosage: UNK, UNKNOWN
     Route: 065
  3. MECLIZINE [Concomitant]
  4. CYMBALTA [Suspect]
     Indication: FIBROMYALGIA
     Dosage: 60 MG, QD
     Route: 065
     Dates: start: 20100101, end: 20110428
  5. BYSTOLIC [Concomitant]
     Dosage: 10 MG, UNKNOWN
     Route: 065
  6. ALLEGRA [Concomitant]
     Dosage: UNK, UNKNOWN
     Route: 065
  7. BENADRYL [Concomitant]
     Dosage: UNK, PRN
  8. ASPIRIN [Concomitant]
     Dosage: 325 DF, UNK
  9. IMMUNE GLOBULIN NOS [Concomitant]
     Dosage: UNK, WEEKLY (1/W)
     Route: 042
  10. K-DUR [Concomitant]
  11. DICLOFENAC SODIUM W/MISOPROSTOL [Concomitant]
     Dosage: UNK, UNKNOWN
     Route: 065
  12. LORAZEPAM [Concomitant]
     Dosage: UNK, UNKNOWN
     Route: 065
  13. MULTI-VITAMIN [Concomitant]

REACTIONS (7)
  - WOUND INFECTION STAPHYLOCOCCAL [None]
  - PYREXIA [None]
  - LACRIMATION INCREASED [None]
  - TROPICAL ULCER [None]
  - HYPERSENSITIVITY [None]
  - PSEUDOMONAS INFECTION [None]
  - ARTHRALGIA [None]
